FAERS Safety Report 25035089 (Version 2)
Quarter: 2025Q3

REPORT INFORMATION
  Report Type: Spontaneous
  Country: EU (occurrence: EU)
  Receive Date: 20250304
  Receipt Date: 20250809
  Transmission Date: 20251020
  Serious: Yes (Hospitalization, Other)
  Sender: ALEXION PHARMACEUTICALS
  Company Number: EU-AstraZeneca-2006PK00569

PATIENT
  Age: 27 Year
  Sex: Female

DRUGS (11)
  1. SEROQUEL [Interacting]
     Active Substance: QUETIAPINE FUMARATE
     Indication: Product used for unknown indication
     Dosage: UNK UNK, QD
     Dates: start: 20060111, end: 20060127
  2. SEROQUEL [Interacting]
     Active Substance: QUETIAPINE FUMARATE
     Dosage: UNK UNK, QD
     Dates: start: 20060128, end: 20060206
  3. SEROQUEL [Interacting]
     Active Substance: QUETIAPINE FUMARATE
     Dosage: UNK UNK, QD
     Dates: start: 20060207
  4. FLUOXETINE HYDROCHLORIDE [Suspect]
     Active Substance: FLUOXETINE HYDROCHLORIDE
     Indication: Product used for unknown indication
     Dosage: UNK UNK, QD
     Dates: start: 20060111, end: 20060125
  5. FLUOXETINE HYDROCHLORIDE [Suspect]
     Active Substance: FLUOXETINE HYDROCHLORIDE
     Dosage: UNK UNK, QD
     Dates: start: 20060126, end: 20060126
  6. MELPERONE [Suspect]
     Active Substance: MELPERONE
     Indication: Product used for unknown indication
     Dosage: UNK UNK, QD
     Dates: start: 20060111, end: 20060125
  7. MELPERONE [Suspect]
     Active Substance: MELPERONE
     Dosage: UNK UNK, QD
     Dates: start: 20060126, end: 20060206
  8. MELPERONE [Suspect]
     Active Substance: MELPERONE
     Dosage: UNK UNK, QD
     Dates: start: 20060207
  9. CIPRALEX [Suspect]
     Active Substance: ESCITALOPRAM OXALATE
     Indication: Product used for unknown indication
     Dosage: UNK UNK, QD
     Dates: start: 20060126
  10. ENALAPRIL MALEATE [Concomitant]
     Active Substance: ENALAPRIL MALEATE
     Indication: Product used for unknown indication
     Dosage: UNK UNK, QD
     Dates: start: 20060101
  11. LEVOTHYROXINE [Concomitant]
     Active Substance: LEVOTHYROXINE
     Indication: Product used for unknown indication
     Dosage: UNK UNK, QD
     Dates: start: 20050101

REACTIONS (4)
  - Drug interaction [Recovered/Resolved]
  - Generalised tonic-clonic seizure [Recovered/Resolved]
  - Electrocardiogram QT prolonged [Recovered/Resolved]
  - Limb injury [Recovered/Resolved]

NARRATIVE: CASE EVENT DATE: 20060101
